FAERS Safety Report 8238391-6 (Version None)
Quarter: 2012Q1

REPORT INFORMATION
  Report Type: 
  Country: None (occurrence: None)
  Receive Date: 20120327
  Receipt Date: 20120319
  Transmission Date: 20120608
  Serious: Yes (Hospitalization)
  Sender: FDA-Public Use
  Company Number: DE-ROCHE-1047097

PATIENT
  Sex: Male

DRUGS (14)
  1. NEULASTA [Suspect]
     Indication: MALIGNANT LYMPHOID NEOPLASM
     Dosage: DOSE: 1 FS, DATE OF LAST DOSE PRIOR TO SAE: 28/FEB/2012
     Route: 058
     Dates: start: 20120217
  2. PREDNISOLONE [Suspect]
     Indication: MALIGNANT LYMPHOID NEOPLASM
     Dosage: DATE OF LAST DOSE PRIOR TO SAE: 28/FEB/2012
     Route: 065
     Dates: start: 20120214, end: 20120218
  3. METOPROLOL SUCCINATE [Concomitant]
     Indication: HYPERTENSION
     Route: 048
     Dates: start: 20120207
  4. OXYBUTYNIN [Concomitant]
     Dates: start: 20120207
  5. MABTHERA [Suspect]
     Indication: MALIGNANT LYMPHOID NEOPLASM
     Dosage: DATE OF LAST DOSE PRIOR TO SAE: 27/FEB/2012
     Route: 042
     Dates: start: 20120213
  6. CARBAMAZEPINE [Concomitant]
     Route: 048
     Dates: start: 20120207
  7. ATACAND [Concomitant]
     Indication: HYPERTENSION
     Route: 048
     Dates: start: 20120207
  8. CYCLOPHOSPHAMIDE [Suspect]
     Indication: MALIGNANT LYMPHOID NEOPLASM
     Dosage: DATE OF LAST DOSE PRIOR TO SAE: 28/FEB/2012
     Route: 042
     Dates: start: 20120214
  9. VINCRISTINE [Suspect]
     Indication: MALIGNANT LYMPHOID NEOPLASM
     Dosage: DATE OF LAST DOSE PRIOR TO SAE: 28/FEB/2012
     Route: 042
     Dates: start: 20120214
  10. DOXORUBICIN HCL [Suspect]
     Indication: MALIGNANT LYMPHOID NEOPLASM
     Dosage: DATE OF LAST DOSE PRIOR TO SAE: 28/FEB/2012
     Route: 042
     Dates: start: 20120214
  11. HYDROCHLOROTHIAZIDE [Concomitant]
     Indication: HYPERTENSION
     Route: 048
     Dates: start: 20120207
  12. TRIMIPRAMINE MALEATE [Concomitant]
     Route: 048
     Dates: start: 20120207
  13. AMLODIPINE [Concomitant]
     Dates: start: 20120207
  14. LYRICA [Concomitant]
     Dates: start: 20120207

REACTIONS (1)
  - THROMBOPHLEBITIS SUPERFICIAL [None]
